FAERS Safety Report 12225360 (Version 1)
Quarter: 2016Q1

REPORT INFORMATION
  Report Type: Spontaneous
  Country: US (occurrence: None)
  Receive Date: 20160330
  Receipt Date: 20160330
  Transmission Date: 20160526
  Serious: No
  Sender: FDA-Public Use
  Company Number: None

PATIENT
  Sex: Male

DRUGS (1)
  1. ALLOPURINOL. [Suspect]
     Active Substance: ALLOPURINOL

REACTIONS (8)
  - Dizziness [None]
  - Swelling face [None]
  - Pallor [None]
  - Balance disorder [None]
  - Hypersensitivity [None]
  - Coordination abnormal [None]
  - Pruritus [None]
  - Asthenia [None]
